FAERS Safety Report 20414630 (Version 2)
Quarter: 2022Q1

REPORT INFORMATION
  Report Type: Spontaneous
  Country: US (occurrence: US)
  Receive Date: 20220202
  Receipt Date: 20220308
  Transmission Date: 20220423
  Serious: Yes (Hospitalization)
  Sender: FDA-Public Use
  Company Number: US-Melinta Therapeutics, LLC-US-MLNT-22-00010

PATIENT
  Age: 48 Year
  Sex: Male

DRUGS (8)
  1. ORBACTIV [Suspect]
     Active Substance: ORITAVANCIN
     Indication: Shunt infection
     Dosage: NOT PROVIDED.
     Route: 041
     Dates: start: 20210108, end: 20210108
  2. ORBACTIV [Suspect]
     Active Substance: ORITAVANCIN
     Indication: Staphylococcal infection
  3. DALBAVANCIN [Suspect]
     Active Substance: DALBAVANCIN
     Indication: Shunt infection
     Route: 042
  4. DALBAVANCIN [Suspect]
     Active Substance: DALBAVANCIN
     Indication: Staphylococcal infection
     Route: 042
  5. VANCOMYCIN [Concomitant]
     Active Substance: VANCOMYCIN
     Indication: Hepatic infection
     Dosage: NOT PROVIDED.
  6. PIPERACILIN-TAZOBACTAM [Concomitant]
     Indication: Hepatic infection
     Dosage: NOT PROVIDED.
  7. CEFAZOLIN [Concomitant]
     Active Substance: CEFAZOLIN
     Indication: Hepatic infection
     Dosage: NOT PROVIDED.
     Route: 042
  8. CEFAZOLIN [Concomitant]
     Active Substance: CEFAZOLIN
     Indication: Staphylococcal infection

REACTIONS (2)
  - Dyspnoea [Recovered/Resolved]
  - Off label use [Recovered/Resolved]
